FAERS Safety Report 5071210-8 (Version None)
Quarter: 2006Q3

REPORT INFORMATION
  Report Type: 
  Country: None (occurrence: None)
  Receive Date: 20060714
  Receipt Date: 20060608
  Transmission Date: 20061208
  Serious: No
  Sender: FDA-Public Use
  Company Number: 2006SP002350

PATIENT
  Age: 52 Year
  Sex: Female
  Weight: 65.7716 kg

DRUGS (5)
  1. LUNESTA [Suspect]
     Indication: INSOMNIA
     Dosage: 2 MG; HS; ORAL
     Route: 048
     Dates: start: 20060523
  2. DEPAKOTE [Concomitant]
  3. ORAL CONTRACEPTIVE NOS [Concomitant]
  4. EFFEXOR [Concomitant]
  5. SEROQUEL [Concomitant]

REACTIONS (2)
  - CONTUSION [None]
  - NAUSEA [None]
